FAERS Safety Report 4266586-5 (Version None)
Quarter: 2004Q1

REPORT INFORMATION
  Report Type: 
  Country: None (occurrence: None)
  Receive Date: 20040108
  Receipt Date: 20031223
  Transmission Date: 20041129
  Serious: Yes (Hospitalization)
  Sender: FDA-Public Use
  Company Number: FR-BRISTOL-MYERS SQUIBB COMPANY-12463857

PATIENT
  Age: 63 Year
  Sex: Female

DRUGS (3)
  1. APROVEL TABS 300 MG [Suspect]
     Indication: ESSENTIAL HYPERTENSION
     Route: 048
     Dates: start: 20030420, end: 20030728
  2. TERALITHE [Suspect]
     Indication: DEPRESSION
     Dosage: ^1 TABLET/DAY 1 DAY OF 2 DAYS + OTHER DAYS AT 0.5 TAB/DAY^. 5,5 TABS/WEEK.
     Dates: end: 20030728
  3. LIPANTHYL [Concomitant]

REACTIONS (11)
  - ANURIA [None]
  - ASTHENIA [None]
  - BLOOD PRESSURE SYSTOLIC INCREASED [None]
  - CONFUSIONAL STATE [None]
  - DISORIENTATION [None]
  - DRUG LEVEL DECREASED [None]
  - ELECTROCARDIOGRAM QRS COMPLEX SHORTENED [None]
  - HYPERKALAEMIA [None]
  - RENAL FAILURE ACUTE [None]
  - SPEECH DISORDER [None]
  - THERAPEUTIC AGENT TOXICITY [None]
